FAERS Safety Report 7241093-6 (Version None)
Quarter: 2011Q1

REPORT INFORMATION
  Report Type: 
  Country: None (occurrence: None)
  Receive Date: 20110124
  Receipt Date: 20110118
  Transmission Date: 20110831
  Serious: Yes (Hospitalization, Other)
  Sender: FDA-Public Use
  Company Number: AU-PFIZER INC-2011011159

PATIENT
  Age: 55 Year
  Sex: Male

DRUGS (3)
  1. SUTENT [Suspect]
     Indication: RENAL CANCER STAGE IV
     Dosage: UNK
  2. KARVEZIDE [Concomitant]
     Indication: HYPERTENSION
  3. LIPITOR [Concomitant]
     Indication: HYPERCHOLESTEROLAEMIA

REACTIONS (9)
  - LOSS OF CONSCIOUSNESS [None]
  - DIARRHOEA [None]
  - FATIGUE [None]
  - ORAL PAIN [None]
  - ARTHRALGIA [None]
  - SYNCOPE [None]
  - APHAGIA [None]
  - HYPOTENSION [None]
  - RASH [None]
